FAERS Safety Report 5898438-9 (Version None)
Quarter: 2008Q3

REPORT INFORMATION
  Report Type: 
  Country: None (occurrence: None)
  Receive Date: 20080925
  Receipt Date: 20080125
  Transmission Date: 20090109
  Serious: No
  Sender: FDA-Public Use
  Company Number: A0691450A

PATIENT
  Age: 54 Year
  Sex: Female

DRUGS (7)
  1. WELLBUTRIN XL [Suspect]
     Indication: DEPRESSION
     Dosage: 300MG PER DAY
     Route: 048
     Dates: start: 20010101
  2. AMBIEN [Concomitant]
  3. GLYBURIDE [Concomitant]
  4. AVANDIA [Concomitant]
  5. ALTAT [Concomitant]
  6. ZESTRIL [Concomitant]
  7. THEOPHYLLINE [Concomitant]

REACTIONS (2)
  - AGITATION [None]
  - PHARMACEUTICAL PRODUCT COMPLAINT [None]
